FAERS Safety Report 15422659 (Version 3)
Quarter: 2019Q3

REPORT INFORMATION
  Report Type: Report from Study
  Country: JP (occurrence: JP)
  Receive Date: 20180925
  Receipt Date: 20190904
  Transmission Date: 20191004
  Serious: Yes (Hospitalization)
  Sender: FDA-Public Use
  Company Number: JP-ROCHE-2188097

PATIENT
  Age: 41 Year
  Sex: Male
  Weight: 104.2 kg

DRUGS (45)
  1. IRBESARTAN. [Concomitant]
     Active Substance: IRBESARTAN
     Indication: HYPERTENSION
     Dosage: (AFTER EACH MEAL)
     Route: 048
     Dates: start: 20171221, end: 20180705
  2. TRAZENTA [Concomitant]
     Active Substance: LINAGLIPTIN
     Dosage: 5 MG, UNK
     Route: 048
     Dates: start: 20190330, end: 20190331
  3. ALLOPURINOL. [Concomitant]
     Active Substance: ALLOPURINOL
     Indication: HYPERURICAEMIA
     Dosage: 100 MG, BID
     Route: 048
     Dates: start: 20180831, end: 20190218
  4. NIFEDIPINE. [Concomitant]
     Active Substance: NIFEDIPINE
     Dosage: 60 MG, UNK
     Route: 048
     Dates: start: 20190314, end: 20190325
  5. MYOCOR [Concomitant]
     Active Substance: NITROGLYCERIN
     Indication: HYPERTENSION
     Dosage: 25 IU, UNK
     Route: 042
     Dates: start: 20190312, end: 20190313
  6. RANIBIZUMAB. [Suspect]
     Active Substance: RANIBIZUMAB
     Indication: DIABETIC RETINAL OEDEMA
     Route: 031
     Dates: start: 20180305
  7. KALLIDINOGENASE [Concomitant]
     Active Substance: KALLIDINOGENASE
     Indication: CARDIOVASCULAR DISORDER
     Dosage: 150 DF, UNK
     Route: 048
     Dates: start: 20171201, end: 20180705
  8. LASIX [Concomitant]
     Active Substance: FUROSEMIDE
     Dosage: (AFTER MORNING MEAL)
     Route: 048
     Dates: start: 20180706, end: 20190315
  9. CANDESARTAN. [Concomitant]
     Active Substance: CANDESARTAN
     Indication: HYPERTENSION
     Dosage: 12 MG, UNK
     Route: 048
     Dates: start: 20180706, end: 20180731
  10. BISOPROLOL [Concomitant]
     Active Substance: BISOPROLOL
     Indication: HYPERTENSION
     Dosage: 2.5 UNK, UNK
     Route: 048
     Dates: start: 20190219
  11. FUROSEMIDE. [Concomitant]
     Active Substance: FUROSEMIDE
     Dosage: 60 MG, UNK
     Route: 048
     Dates: start: 20190409
  12. FUROSEMIDE. [Concomitant]
     Active Substance: FUROSEMIDE
     Dosage: 60 IU, UNK
     Route: 042
     Dates: start: 20190312, end: 20190315
  13. EQUA [Concomitant]
     Active Substance: VILDAGLIPTIN
     Dosage: 100 MG, UNK
     Route: 048
     Dates: start: 20190325, end: 20190330
  14. TENELIA [Concomitant]
     Active Substance: TENELIGLIPTIN
     Indication: TYPE 2 DIABETES MELLITUS
     Dosage: 20 MG, UNK
     Route: 048
     Dates: start: 20180706, end: 20180731
  15. FEBURIC [Concomitant]
     Active Substance: FEBUXOSTAT
     Dosage: 30 MG, UNK
     Route: 048
     Dates: start: 20190329, end: 20190408
  16. ROSUVASTATIN CALCIUM. [Concomitant]
     Active Substance: ROSUVASTATIN CALCIUM
     Indication: HYPERLIPIDAEMIA
     Dosage: 2.5 MG, UNK
     Route: 048
     Dates: start: 20171221, end: 20180705
  17. DIART [Concomitant]
     Active Substance: AZOSEMIDE
     Indication: HYPERTENSION
     Dosage: (AFTER MORNING MEAL)
     Route: 048
     Dates: start: 20171221
  18. MIGLITOL. [Concomitant]
     Active Substance: MIGLITOL
     Indication: TYPE 2 DIABETES MELLITUS
     Dosage: (RIGHT BEFORE EACH MEAL)
     Route: 048
     Dates: start: 20180706, end: 20190218
  19. DIAMOX SEQUELS [Concomitant]
     Active Substance: ACETAZOLAMIDE
     Indication: PRODUCT USED FOR UNKNOWN INDICATION
     Dosage: 250 MG, BID
     Route: 048
     Dates: start: 20180915, end: 20180917
  20. FUROSEMIDE. [Concomitant]
     Active Substance: FUROSEMIDE
     Indication: HYPERTENSION
     Dosage: 110 MG, UNK
     Route: 048
     Dates: start: 20190316, end: 20190325
  21. EQUA [Concomitant]
     Active Substance: VILDAGLIPTIN
     Indication: TYPE 2 DIABETES MELLITUS
     Dosage: 50 MG, UNK
     Route: 048
     Dates: start: 20190318, end: 20190324
  22. TARIVID [OFLOXACIN] [Concomitant]
     Dosage: UNK
     Route: 047
     Dates: start: 20180916
  23. NIFEDIPINE. [Concomitant]
     Active Substance: NIFEDIPINE
     Dosage: 80 MG, UNK
     Route: 048
     Dates: start: 20190326
  24. IRBESARTAN. [Concomitant]
     Active Substance: IRBESARTAN
     Indication: HYPERLIPIDAEMIA
     Dosage: 150 MG, UNK
     Route: 048
     Dates: start: 20180801, end: 20190312
  25. BRONUCK [Concomitant]
     Active Substance: BROMFENAC SODIUM
     Indication: PROPHYLAXIS
     Dosage: 2 GTT, UNK
     Route: 031
     Dates: start: 20180915, end: 20181025
  26. NIFEDIPINE. [Concomitant]
     Active Substance: NIFEDIPINE
     Dosage: 80 MG, UNK
     Route: 048
     Dates: start: 20190313, end: 20190313
  27. FUROSEMIDE. [Concomitant]
     Active Substance: FUROSEMIDE
     Indication: HYPERTENSION
     Dosage: 80 MG, UNK
     Route: 048
     Dates: start: 20190326, end: 20190331
  28. FUROSEMIDE. [Concomitant]
     Active Substance: FUROSEMIDE
     Dosage: 60 MG, UNK
     Route: 048
     Dates: start: 20190401, end: 20190408
  29. FRANDOL [Concomitant]
     Active Substance: ISOSORBIDE DINITRATE
     Indication: PROPHYLAXIS
     Dosage: 40 MG, UNK
     Route: 062
     Dates: start: 20190320
  30. RANIBIZUMAB. [Suspect]
     Active Substance: RANIBIZUMAB
     Indication: VISUAL IMPAIRMENT
     Route: 031
     Dates: start: 20180514
  31. LASIX [Concomitant]
     Active Substance: FUROSEMIDE
     Indication: HYPERTENSION
     Dosage: (AFTER LUNCH)
     Route: 048
  32. SUINY [Concomitant]
     Active Substance: ANAGLIPTIN
     Indication: TYPE 2 DIABETES MELLITUS
     Dosage: 200 MG, UNK
     Route: 048
     Dates: start: 20171221, end: 20180705
  33. AMLODIPINE BESILATE [Concomitant]
     Active Substance: AMLODIPINE BESYLATE
     Indication: HYPERTENSION
     Dosage: 5 MG, UNK
     Route: 048
     Dates: start: 20171221, end: 20180705
  34. IPRAGLIFLOZIN [Concomitant]
     Active Substance: IPRAGLIFLOZIN
     Indication: TYPE 2 DIABETES MELLITUS
     Dosage: (AFTER MORNING MEAL)??REPORTED AS SUGLAT
     Route: 048
     Dates: start: 20180706, end: 20190218
  35. TARIVID [OFLOXACIN] [Concomitant]
     Indication: PRODUCT USED FOR UNKNOWN INDICATION
     Dosage: UNK
     Route: 047
     Dates: start: 20180915
  36. RINDERON [BETAMETHASONE] [Concomitant]
     Active Substance: BETAMETHASONE
     Indication: PROPHYLAXIS
     Dosage: 4 GTT, UNK
     Route: 031
     Dates: start: 20180915, end: 20181025
  37. NIFEDIPINE. [Concomitant]
     Active Substance: NIFEDIPINE
     Indication: HYPERTENSION
     Dosage: 60 MG, UNK
     Route: 048
     Dates: start: 20190311, end: 20190312
  38. FEBURIC [Concomitant]
     Active Substance: FEBUXOSTAT
     Indication: HYPERURICAEMIA
     Dosage: 20 MG, UNK
     Route: 048
     Dates: start: 20190311, end: 20190328
  39. FEBURIC [Concomitant]
     Active Substance: FEBUXOSTAT
     Dosage: 40 MG, UNK
     Route: 048
     Dates: start: 20190409
  40. IRBESARTAN. [Concomitant]
     Active Substance: IRBESARTAN
     Dosage: 200 MG, UNK
     Route: 048
     Dates: start: 20190313
  41. ADALAT CRONO [Concomitant]
     Active Substance: NIFEDIPINE
     Indication: HYPERTENSION
     Dosage: (AFTER MORNING MEAL AND EVENING MEAL)
     Route: 048
     Dates: start: 20180706, end: 20190310
  42. TRAZENTA [Concomitant]
     Active Substance: LINAGLIPTIN
     Indication: TYPE 2 DIABETES MELLITUS
     Dosage: (AFTER MORNING MEAL)
     Route: 048
     Dates: start: 20180801, end: 20190218
  43. VEGAMOX [Concomitant]
     Active Substance: MOXIFLOXACIN HYDROCHLORIDE
     Indication: INFECTION PROPHYLAXIS
     Dosage: 4 GTT, UNK
     Route: 031
     Dates: start: 20180915, end: 20181025
  44. URIADEC [Concomitant]
     Active Substance: TOPIROXOSTAT
     Indication: HYPERURICAEMIA
     Dosage: 80 MG, UNK
     Route: 048
     Dates: start: 20190219, end: 20190310
  45. EQUA [Concomitant]
     Active Substance: VILDAGLIPTIN
     Dosage: 100 MG, UNK
     Route: 048
     Dates: start: 20190401

REACTIONS (1)
  - Vitreous haemorrhage [Recovered/Resolved]

NARRATIVE: CASE EVENT DATE: 20180702
